FAERS Safety Report 6105572-7 (Version None)
Quarter: 2009Q1

REPORT INFORMATION
  Report Type: 
  Country: None (occurrence: None)
  Receive Date: 20090304
  Receipt Date: 20090304
  Transmission Date: 20090719
  Serious: Yes (Other)
  Sender: FDA-Public Use
  Company Number: None

PATIENT
  Sex: Male

DRUGS (1)
  1. IMIPENEM AND CILASTATIN SODIUM [Suspect]
     Indication: WOUND INFECTION
     Dosage: 500MG Q8HOURS IV
     Route: 042
     Dates: start: 20090225, end: 20090227

REACTIONS (1)
  - CONVULSION [None]
